FAERS Safety Report 12289634 (Version 1)
Quarter: 2016Q2

REPORT INFORMATION
  Report Type: Spontaneous
  Country: US (occurrence: US)
  Receive Date: 20160421
  Receipt Date: 20160421
  Transmission Date: 20160815
  Serious: No
  Sender: FDA-Public Use
  Company Number: US-TEVA-581986USA

PATIENT
  Sex: Female

DRUGS (1)
  1. CEFALEXIN [Suspect]
     Active Substance: CEPHALEXIN
     Indication: GENITOURINARY TRACT INFECTION
     Dosage: 500 MILLIGRAM DAILY;

REACTIONS (6)
  - Dizziness [Unknown]
  - Diarrhoea [Unknown]
  - Peripheral swelling [Unknown]
  - Hypoaesthesia [Unknown]
  - Nausea [Unknown]
  - Joint swelling [Unknown]
